FAERS Safety Report 8932821 (Version 1)
Quarter: 2012Q4

REPORT INFORMATION
  Report Type: 
  Country: PH (occurrence: PH)
  Receive Date: 20121129
  Receipt Date: 20121129
  Transmission Date: 20130627
  Serious: Yes (Hospitalization)
  Sender: FDA-Public Use
  Company Number: PHHY2012PH073061

PATIENT
  Age: 33 None
  Sex: Female
  Weight: 31 kg

DRUGS (3)
  1. AFINITOR [Suspect]
     Indication: BREAST CANCER
     Dosage: 10 mg, QD
     Route: 048
     Dates: start: 20120309, end: 20120409
  2. AFINITOR [Suspect]
     Dosage: 10 mg, QD
     Route: 048
     Dates: start: 20120611
  3. AROMASIN [Suspect]
     Indication: BREAST CANCER
     Dosage: 25 mg, per day
     Route: 048
     Dates: start: 20120309

REACTIONS (12)
  - Joint stiffness [Recovered/Resolved]
  - Electrolyte imbalance [Not Recovered/Not Resolved]
  - Blood calcium decreased [Unknown]
  - Blood potassium decreased [Unknown]
  - Muscular weakness [Recovered/Resolved]
  - Gingival inflammation [Not Recovered/Not Resolved]
  - Rash pruritic [Recovering/Resolving]
  - Rash erythematous [Recovering/Resolving]
  - Tongue ulceration [Not Recovered/Not Resolved]
  - Decreased appetite [Not Recovered/Not Resolved]
  - Diarrhoea [Not Recovered/Not Resolved]
  - Weight decreased [Unknown]
